FAERS Safety Report 25749634 (Version 1)
Quarter: 2025Q3

REPORT INFORMATION
  Report Type: Spontaneous
  Country: US (occurrence: US)
  Receive Date: 20250902
  Receipt Date: 20250902
  Transmission Date: 20251020
  Serious: Yes (Hospitalization, Other)
  Sender: NOVITIUM PHARMA
  Company Number: US-NOVITIUMPHARMA-2025USNVP02185

PATIENT
  Age: 4 Year
  Sex: Male

DRUGS (14)
  1. DEXAMETHASONE [Suspect]
     Active Substance: DEXAMETHASONE
     Indication: Precursor B-lymphoblastic lymphoma
     Route: 048
  2. DEXAMETHASONE [Suspect]
     Active Substance: DEXAMETHASONE
  3. DEXAMETHASONE [Suspect]
     Active Substance: DEXAMETHASONE
  4. VINCRISTINE [Concomitant]
     Active Substance: VINCRISTINE
     Route: 042
  5. VINCRISTINE [Concomitant]
     Active Substance: VINCRISTINE
  6. VINCRISTINE [Concomitant]
     Active Substance: VINCRISTINE
  7. MERCAPTOPURINE [Concomitant]
     Active Substance: MERCAPTOPURINE
     Route: 048
  8. MERCAPTOPURINE [Concomitant]
     Active Substance: MERCAPTOPURINE
  9. MERCAPTOPURINE [Concomitant]
     Active Substance: MERCAPTOPURINE
  10. METHOTREXATE [Concomitant]
     Active Substance: METHOTREXATE
     Route: 048
  11. METHOTREXATE [Concomitant]
     Active Substance: METHOTREXATE
  12. METHOTREXATE [Concomitant]
     Active Substance: METHOTREXATE
  13. CEFEPIME [Concomitant]
     Active Substance: CEFEPIME HYDROCHLORIDE
     Indication: Febrile neutropenia
  14. CASPOFUNGIN [Concomitant]
     Active Substance: CASPOFUNGIN
     Indication: Febrile neutropenia

REACTIONS (3)
  - Myelosuppression [Recovering/Resolving]
  - Cytomegalovirus viraemia [Unknown]
  - Respiratory syncytial virus infection [Unknown]
